FAERS Safety Report 15630766 (Version 4)
Quarter: 2018Q4

REPORT INFORMATION
  Report Type: Report from Study
  Country: CN (occurrence: CN)
  Receive Date: 20181119
  Receipt Date: 20181212
  Transmission Date: 20190205
  Serious: Yes (Hospitalization)
  Sender: FDA-Public Use
  Company Number: CN-ROCHE-2213822

PATIENT
  Age: 65 Year
  Sex: Female
  Weight: 50 kg

DRUGS (12)
  1. TRASTUZUMAB EMTANSINE [Suspect]
     Active Substance: ADO-TRASTUZUMAB EMTANSINE
     Indication: HER-2 POSITIVE BREAST CANCER
     Dosage: DATE OF MOST RECENT DOSE 198 MG OF TRASTUZUMAB EMTANSINE PRIOR TO AE ONSET WAS 31/OCT/2018
     Route: 042
     Dates: start: 20180130
  2. GLUTATHIONE REDUCED [Concomitant]
     Route: 065
     Dates: start: 20181031, end: 20181101
  3. LEVOCARNITINE. [Concomitant]
     Active Substance: LEVOCARNITINE
     Route: 065
     Dates: start: 20181010, end: 20181011
  4. CEFEPIME [Concomitant]
     Active Substance: CEFEPIME HYDROCHLORIDE
     Route: 065
     Dates: start: 20181108, end: 20181112
  5. INSULIN [Concomitant]
     Active Substance: INSULIN NOS
     Indication: HYPOGLYCAEMIA
     Route: 065
     Dates: start: 20181108, end: 20181108
  6. OMEPRAZOLE. [Concomitant]
     Active Substance: OMEPRAZOLE
     Route: 065
     Dates: start: 20181010, end: 20181011
  7. OMEPRAZOLE. [Concomitant]
     Active Substance: OMEPRAZOLE
     Route: 065
     Dates: start: 20181031, end: 20181101
  8. GLUTATHIONE REDUCED [Concomitant]
     Route: 065
     Dates: start: 20181010, end: 20181011
  9. DIPHENHYDRAMINE. [Concomitant]
     Active Substance: DIPHENHYDRAMINE
     Route: 065
     Dates: start: 20181031, end: 20181031
  10. PROPRANOLOL HYDROCHLORIDE. [Concomitant]
     Active Substance: PROPRANOLOL HYDROCHLORIDE
     Route: 065
     Dates: start: 20181108, end: 20181108
  11. LEVOCARNITINE. [Concomitant]
     Active Substance: LEVOCARNITINE
     Route: 065
     Dates: start: 20181031, end: 20181101
  12. DIPHENHYDRAMINE. [Concomitant]
     Active Substance: DIPHENHYDRAMINE
     Route: 065
     Dates: start: 20181010, end: 20181010

REACTIONS (1)
  - Depressed level of consciousness [Recovered/Resolved]

NARRATIVE: CASE EVENT DATE: 20181108
